FAERS Safety Report 12480474 (Version 1)
Quarter: 2016Q2

REPORT INFORMATION
  Report Type: Spontaneous
  Country: GB (occurrence: GB)
  Receive Date: 20160620
  Receipt Date: 20160620
  Transmission Date: 20160815
  Serious: Yes (Hospitalization, Disabling)
  Sender: FDA-Public Use
  Company Number: GB-ELI_LILLY_AND_COMPANY-GB201606006391

PATIENT
  Age: 15 Year
  Sex: Male

DRUGS (1)
  1. SOMATROPIN [Suspect]
     Active Substance: SOMATROPIN
     Indication: GROWTH HORMONE DEFICIENCY
     Dosage: 1 DF, UNKNOWN (TAKEN FOR APPROXIMATELY A YEAR)
     Route: 065
     Dates: start: 2015, end: 201512

REACTIONS (3)
  - No therapeutic response [Unknown]
  - Bone disorder [Unknown]
  - Arthralgia [Unknown]
